FAERS Safety Report 10591739 (Version 5)
Quarter: 2015Q3

REPORT INFORMATION
  Report Type: Spontaneous
  Country: US (occurrence: US)
  Receive Date: 20141118
  Receipt Date: 20150817
  Transmission Date: 20151125
  Serious: Yes (Other)
  Sender: FDA-Public Use
  Company Number: US-GLAXOSMITHKLINE-A1090266A

PATIENT

DRUGS (12)
  1. MULTIVITAMINS [Concomitant]
     Active Substance: VITAMINS
  2. NEURONTIN [Concomitant]
     Active Substance: GABAPENTIN
  3. VOTRIENT [Suspect]
     Active Substance: PAZOPANIB HYDROCHLORIDE
     Dosage: UNK
     Dates: end: 20141003
  4. ALLOPURINOL. [Concomitant]
     Active Substance: ALLOPURINOL
  5. ADVIL [Concomitant]
     Active Substance: IBUPROFEN
  6. SUTENT [Concomitant]
     Active Substance: SUNITINIB MALATE
  7. VOTRIENT [Suspect]
     Active Substance: PAZOPANIB HYDROCHLORIDE
     Dosage: 400 MG, QD
  8. VOTRIENT [Suspect]
     Active Substance: PAZOPANIB HYDROCHLORIDE
     Dosage: 200 MG TABLETS (2)
     Route: 048
     Dates: start: 20140726
  9. VOLTAREN [Concomitant]
     Active Substance: DICLOFENAC SODIUM
  10. VOTRIENT [Suspect]
     Active Substance: PAZOPANIB HYDROCHLORIDE
     Indication: ILL-DEFINED DISORDER
     Dosage: UNK
     Dates: start: 20140705
  11. ATENOLOL. [Concomitant]
     Active Substance: ATENOLOL
  12. PROTONIX [Concomitant]
     Active Substance: PANTOPRAZOLE SODIUM

REACTIONS (13)
  - Burning sensation [Unknown]
  - Haemoglobin increased [Unknown]
  - Cataract operation [Unknown]
  - Hyperaesthesia [Unknown]
  - Cataract [Unknown]
  - Diarrhoea [Unknown]
  - Hair colour changes [Unknown]
  - Abdominal discomfort [Unknown]
  - Adverse drug reaction [Unknown]
  - Vision blurred [Unknown]
  - Phlebotomy [Unknown]
  - Eczema [Unknown]
  - Alopecia [Unknown]

NARRATIVE: CASE EVENT DATE: 20141006
